FAERS Safety Report 10195752 (Version 1)
Quarter: 2014Q2

REPORT INFORMATION
  Report Type: Spontaneous
  Country: US (occurrence: None)
  Receive Date: 20140522
  Receipt Date: 20140522
  Transmission Date: 20141212
  Serious: Yes (Life-Threatening)
  Sender: FDA-Public Use
  Company Number: 2014P1004227

PATIENT
  Age: 65 Year
  Sex: Female
  Weight: 57 kg

DRUGS (8)
  1. LISINOPRIL AND HYDROCHLOROTHIAZIDE [Suspect]
     Indication: HYPERTENSION
  2. CARVEDILOL [Suspect]
     Indication: HYPERTENSION
  3. PRAVASTATIN [Concomitant]
  4. BUPROPRION [Concomitant]
  5. ASPIRIN [Concomitant]
  6. MIDAZOLAM [Concomitant]
  7. FENTANYL [Concomitant]
  8. PROPOFOL [Concomitant]

REACTIONS (6)
  - Sinus bradycardia [None]
  - Cardiac arrest [None]
  - Atrioventricular block complete [None]
  - Procedural hypotension [None]
  - Tricuspid valve incompetence [None]
  - Mitral valve incompetence [None]
